FAERS Safety Report 5331624-5 (Version None)
Quarter: 2007Q2

REPORT INFORMATION
  Report Type: 
  Country: None (occurrence: None)
  Receive Date: 20070522
  Receipt Date: 20070510
  Transmission Date: 20071010
  Serious: Yes (Hospitalization)
  Sender: FDA-Public Use
  Company Number: FR-PFIZER INC-2007038803

PATIENT
  Age: 67 Year
  Sex: Female

DRUGS (3)
  1. GABAPENTIN [Suspect]
     Indication: ANALGESIC EFFECT
  2. NAPROXEN [Suspect]
     Dosage: DAILY DOSE:550MG
  3. AMITRIPTYLINE HYDROCHLORIDE [Suspect]
     Dosage: DAILY DOSE:100MG

REACTIONS (9)
  - AGITATION [None]
  - DRUG DEPENDENCE [None]
  - DRUG TOLERANCE [None]
  - DRUG WITHDRAWAL SYNDROME [None]
  - EXOPHTHALMOS [None]
  - HYPERHIDROSIS [None]
  - OVERDOSE [None]
  - PALLOR [None]
  - TREMOR [None]
